FAERS Safety Report 7374377-1 (Version None)
Quarter: 2011Q1

REPORT INFORMATION
  Report Type: 
  Country: None (occurrence: None)
  Receive Date: 20110325
  Receipt Date: 20110317
  Transmission Date: 20110831
  Serious: Yes (Hospitalization)
  Sender: FDA-Public Use
  Company Number: JP-BRISTOL-MYERS SQUIBB COMPANY-15614670

PATIENT
  Age: 79 Year
  Sex: Female
  Weight: 56 kg

DRUGS (12)
  1. GLYCINE 1.5% [Concomitant]
     Dosage: 1 DF = 1 UNITS NOS
     Dates: start: 20070201
  2. PIRENOXINE SODIUM [Concomitant]
     Indication: CATARACT
  3. HYDROCORTISONE [Concomitant]
     Indication: SEBORRHOEIC DERMATITIS
     Dates: start: 20070201
  4. AMLODIPINE [Concomitant]
     Indication: HYPERTENSION
     Dates: start: 20071001
  5. ALENDRONATE SODIUM [Concomitant]
     Indication: OSTEOPOROSIS
     Dates: start: 20070801
  6. PYRIDOXAL PHOSPHATE [Concomitant]
     Indication: NEUROPATHY PERIPHERAL
     Dates: start: 20100406
  7. ALFACALCIDOL [Concomitant]
     Indication: OSTEOPOROSIS
     Dates: start: 20071001
  8. TRIAMCINOLONE ACETONIDE [Concomitant]
     Indication: STOMATITIS
     Dates: start: 20100823
  9. PACLITAXEL [Suspect]
     Indication: BREAST CANCER
     Route: 042
     Dates: start: 20100309, end: 20100810
  10. HEPARIN [Concomitant]
     Indication: PALMAR-PLANTAR ERYTHRODYSAESTHESIA SYNDROME
     Dates: start: 20100423
  11. KETOPROFEN [Concomitant]
     Dosage: 1 DF = 1 UNITS NOS
     Dates: start: 20100823
  12. MECOBALAMIN [Concomitant]
     Indication: NEUROPATHY PERIPHERAL
     Dates: start: 20100406

REACTIONS (2)
  - FALL [None]
  - FEMUR FRACTURE [None]
